FAERS Safety Report 21148779 (Version 2)
Quarter: 2022Q3

REPORT INFORMATION
  Report Type: Spontaneous
  Country: US (occurrence: US)
  Receive Date: 20220729
  Receipt Date: 20220804
  Transmission Date: 20221026
  Serious: No
  Sender: FDA-Public Use
  Company Number: US-Ipsen Biopharmaceuticals, Inc.-2022-21358

PATIENT
  Age: 40 Year
  Sex: Female

DRUGS (4)
  1. DYSPORT [Suspect]
     Active Substance: ABOBOTULINUMTOXINA
     Indication: Skin wrinkling
     Dosage: 135 IU (GLABELLA 60 UNITS, 30 UNITS IN FRONTALIS AND 24 UNITS IN EACH CROW^S FEET )
     Route: 065
     Dates: start: 20220308, end: 20220308
  2. DYSPORT [Suspect]
     Active Substance: ABOBOTULINUMTOXINA
     Indication: Skin wrinkling
  3. DYSPORT [Suspect]
     Active Substance: ABOBOTULINUMTOXINA
     Indication: Skin wrinkling
  4. DYSPORT [Suspect]
     Active Substance: ABOBOTULINUMTOXINA
     Indication: Off label use

REACTIONS (7)
  - Blood blister [Recovered/Resolved]
  - Rash [Recovered/Resolved]
  - Swelling face [Not Recovered/Not Resolved]
  - Intentional product misuse [Unknown]
  - Off label use [Unknown]
  - Prescribed overdose [Unknown]
  - Product preparation error [Unknown]

NARRATIVE: CASE EVENT DATE: 20220101
